FAERS Safety Report 4504396-1 (Version None)
Quarter: 2004Q4

REPORT INFORMATION
  Report Type: 
  Country: None (occurrence: None)
  Receive Date: 20041116
  Receipt Date: 20041102
  Transmission Date: 20050328
  Serious: Yes (Hospitalization)
  Sender: FDA-Public Use
  Company Number: 2004-BP-10393BP

PATIENT
  Age: 70 Year
  Sex: Female
  Weight: 88 kg

DRUGS (11)
  1. SPIRIVA [Suspect]
     Indication: CHRONIC OBSTRUCTIVE AIRWAYS DISEASE
     Dosage: 18 MCG (18 MCG), IH
     Dates: start: 20040601
  2. OXYGEN [Concomitant]
  3. AZMACORT [Concomitant]
  4. ALBUTEROL [Concomitant]
  5. SEREVENT [Concomitant]
  6. PAXIL [Concomitant]
  7. LISINOPRIL [Concomitant]
  8. CLONIDINE [Concomitant]
  9. IPRATROPIUM BROMIDE [Concomitant]
  10. PREVACID [Concomitant]
  11. ZESTRIL [Concomitant]

REACTIONS (1)
  - DYSPNOEA [None]
